FAERS Safety Report 10374097 (Version 3)
Quarter: 2014Q3

REPORT INFORMATION
  Report Type: Other
  Country: JP (occurrence: JP)
  Receive Date: 20140810
  Receipt Date: 20140930
  Transmission Date: 20150326
  Serious: Yes (Life-Threatening)
  Sender: FDA-Public Use
  Company Number: JP-BRISTOL-MYERS SQUIBB COMPANY-21287750

PATIENT
  Age: 6 Decade
  Sex: Male

DRUGS (1)
  1. ERBITUX [Suspect]
     Active Substance: CETUXIMAB
     Indication: COLON CANCER
     Dosage: REG2:250MG/M2,1 IN 1 WK:IVD?PATIENT RECIEVED DOSE (UNKNOWN DATE -28MAY13)
     Route: 041
     Dates: start: 20120622, end: 20120622

REACTIONS (5)
  - Cholangitis [Recovered/Resolved]
  - Disseminated intravascular coagulation [Recovered/Resolved]
  - Dermatitis acneiform [Recovering/Resolving]
  - Septic shock [Recovered/Resolved]
  - Pyrexia [Recovered/Resolved]

NARRATIVE: CASE EVENT DATE: 20120624
